FAERS Safety Report 6994497-0 (Version None)
Quarter: 2010Q3

REPORT INFORMATION
  Report Type: 
  Country: None (occurrence: None)
  Receive Date: 20100917
  Receipt Date: 20100525
  Transmission Date: 20110219
  Serious: Yes (Hospitalization)
  Sender: FDA-Public Use
  Company Number: DE-JNJFOC-20100903437

PATIENT
  Age: 35 Year
  Sex: Female

DRUGS (2)
  1. ETHINYL ESTRADIOL AND NORETHINDRONE [Suspect]
     Indication: PRODUCT USED FOR UNKNOWN INDICATION
     Route: 048
  2. ETHINYL ESTRADIOL AND NORETHINDRONE [Suspect]
     Route: 048

REACTIONS (2)
  - BIPOLAR DISORDER [None]
  - IRRITABILITY [None]
